FAERS Safety Report 8961212 (Version 1)
Quarter: 2012Q4

REPORT INFORMATION
  Report Type: Report from Study
  Country: US (occurrence: US)
  Receive Date: 20121212
  Receipt Date: 20121212
  Transmission Date: 20130627
  Serious: Yes (Other)
  Sender: FDA-Public Use
  Company Number: US-JNJFOC-20121201691

PATIENT
  Sex: Male
  Weight: 63.05 kg

DRUGS (2)
  1. REMICADE [Suspect]
     Indication: ARTHRITIS
     Route: 042
     Dates: start: 2010, end: 201210
  2. MULTIPLE MEDICATIONS UNSPECIFIED [Concomitant]
     Route: 065

REACTIONS (3)
  - Infected skin ulcer [Recovered/Resolved]
  - Injury [Recovered/Resolved]
  - Pain [Not Recovered/Not Resolved]
